FAERS Safety Report 4704482-7 (Version None)
Quarter: 2005Q2

REPORT INFORMATION
  Report Type: 
  Country: None (occurrence: None)
  Receive Date: 20050628
  Receipt Date: 20050615
  Transmission Date: 20051028
  Serious: Yes (Death, Other)
  Sender: FDA-Public Use
  Company Number: FR_050306005

PATIENT
  Age: 18 Year
  Sex: Male
  Weight: 75 kg

DRUGS (3)
  1. ZYPREXA [Suspect]
     Indication: DELIRIUM
     Dosage: 10 MG DAY
     Route: 048
     Dates: start: 20040601
  2. IMOVANE               (ZOPICLONE) [Concomitant]
     Indication: INSOMNIA
  3. LEPTICUR (TROPATEPINE HYDROCHLORIDE) [Concomitant]
     Indication: PARKINSON'S DISEASE

REACTIONS (3)
  - CARDIAC DISORDER [None]
  - PULMONARY OEDEMA [None]
  - WEIGHT INCREASED [None]
